FAERS Safety Report 7304839-4 (Version None)
Quarter: 2011Q1

REPORT INFORMATION
  Report Type: 
  Country: None (occurrence: None)
  Receive Date: 20110222
  Receipt Date: 20110208
  Transmission Date: 20110831
  Serious: Yes (Other)
  Sender: FDA-Public Use
  Company Number: FR-ELI_LILLY_AND_COMPANY-FR201011005008

PATIENT
  Age: 70 Year
  Sex: Female

DRUGS (4)
  1. FORTEO [Suspect]
     Indication: OSTEOPOROSIS
     Dosage: 20 UG, DAILY (1/D)
     Route: 058
     Dates: start: 20100916, end: 20101213
  2. LEVOTHYROX [Concomitant]
     Indication: HYPOTHYROIDISM
     Dosage: 82.5 UG, UNKNOWN
     Route: 048
     Dates: start: 20080101
  3. CRESTOR [Concomitant]
     Indication: HYPERCHOLESTEROLAEMIA
     Dosage: UNK, UNKNOWN
     Route: 048
     Dates: start: 20050101
  4. ONE ALPHA [Concomitant]
     Indication: HYPOCALCAEMIA
     Dosage: UNK, UNKNOWN
     Route: 048
     Dates: start: 20080101

REACTIONS (2)
  - VENTRICULAR EXTRASYSTOLES [None]
  - PAIN IN EXTREMITY [None]
